FAERS Safety Report 12637047 (Version 1)
Quarter: 2016Q3

REPORT INFORMATION
  Report Type: Spontaneous
  Country: US (occurrence: US)
  Receive Date: 20160809
  Receipt Date: 20160809
  Transmission Date: 20161109
  Serious: Yes (Hospitalization)
  Sender: FDA-Public Use
  Company Number: US-BEH-2014042197

PATIENT
  Age: 61 Year
  Sex: Male
  Weight: 74 kg

DRUGS (1)
  1. PRIVIGEN [Suspect]
     Active Substance: HUMAN IMMUNOGLOBULIN G
     Indication: GUILLAIN-BARRE SYNDROME
     Dosage: 0.4 G/KG FOR 6 DAYS
     Route: 042
     Dates: start: 20130524

REACTIONS (1)
  - Haemolytic anaemia [Unknown]

NARRATIVE: CASE EVENT DATE: 20140601
